FAERS Safety Report 21881123 (Version 6)
Quarter: 2025Q1

REPORT INFORMATION
  Report Type: Spontaneous
  Country: IT (occurrence: IT)
  Receive Date: 20230118
  Receipt Date: 20250215
  Transmission Date: 20250409
  Serious: Yes (Other)
  Sender: CELLTRION
  Company Number: IT-CELLTRION INC.-2023IT000606

PATIENT

DRUGS (18)
  1. INFLIXIMAB [Suspect]
     Active Substance: INFLIXIMAB
     Indication: Psoriatic arthropathy
  2. INFLIXIMAB [Suspect]
     Active Substance: INFLIXIMAB
     Indication: Psoriasis
  3. ADALIMUMAB [Suspect]
     Active Substance: ADALIMUMAB
     Indication: Psoriatic arthropathy
     Dosage: 40 MILLIGRAM, Q2W
     Route: 058
  4. ADALIMUMAB [Suspect]
     Active Substance: ADALIMUMAB
     Indication: Erythrodermic psoriasis
     Dosage: 40 MILLIGRAM, Q2W
  5. ADALIMUMAB [Suspect]
     Active Substance: ADALIMUMAB
     Dosage: 40 MG EVERY 2 WK, ^40 MILLIGRAM, Q2W^
  6. USTEKINUMAB [Suspect]
     Active Substance: USTEKINUMAB
     Indication: Erythrodermic psoriasis
  7. METHOTREXATE [Suspect]
     Active Substance: METHOTREXATE
     Indication: Psoriatic arthropathy
     Dosage: 15 MILLIGRAM, QW/15 MG EVERY 1 WK, ^15 MILLIGRAM, QW^
  8. PREDNISONE [Suspect]
     Active Substance: PREDNISONE
     Indication: Erythrodermic psoriasis
     Route: 048
  9. ETANERCEPT [Suspect]
     Active Substance: ETANERCEPT
     Indication: Erythrodermic psoriasis
     Dosage: 50 MILLIGRAM, 0.5 WEEK AS OFF LABEL REGIMEN
  10. ETANERCEPT [Suspect]
     Active Substance: ETANERCEPT
     Dosage: 50 MILLIGRAM, QW (50 MG, Q WEEK), (DAILY DOSE: 7.0 MG)/
     Route: 065
  11. ETANERCEPT [Suspect]
     Active Substance: ETANERCEPT
     Route: 065
  12. ETANERCEPT [Suspect]
     Active Substance: ETANERCEPT
     Dosage: 50 MILLIGRAM, QW MAINTENANCE DOSE
  13. CYCLOSPORINE [Suspect]
     Active Substance: CYCLOSPORINE
     Indication: Psoriatic arthropathy
  14. CYCLOSPORINE [Suspect]
     Active Substance: CYCLOSPORINE
     Indication: Erythrodermic psoriasis
  15. ACITRETIN [Suspect]
     Active Substance: ACITRETIN
     Indication: Erythrodermic psoriasis
     Route: 065
  16. ACITRETIN [Suspect]
     Active Substance: ACITRETIN
  17. SECUKINUMAB [Concomitant]
     Active Substance: SECUKINUMAB
     Indication: Erythrodermic psoriasis
  18. ETANERCEPT [Concomitant]
     Active Substance: ETANERCEPT
     Indication: Erythrodermic psoriasis
     Dosage: 50 MILLIGRAM, Q2W (INDUCTION DOSAGE)
     Route: 065

REACTIONS (12)
  - Cushing^s syndrome [Recovering/Resolving]
  - Renal failure [Unknown]
  - Hepatic enzyme increased [Recovering/Resolving]
  - Dyslipidaemia [Recovering/Resolving]
  - Psoriasis [Recovered/Resolved]
  - Hypertension [Unknown]
  - Concomitant disease progression [Unknown]
  - Treatment failure [Unknown]
  - Drug ineffective [Unknown]
  - Off label use [Unknown]
  - Therapeutic product effect decreased [Unknown]
  - Therapeutic product effect incomplete [Unknown]
